FAERS Safety Report 20268552 (Version 1)
Quarter: 2021Q4

REPORT INFORMATION
  Report Type: Other
  Country: CN (occurrence: None)
  Receive Date: 20211231
  Receipt Date: 20211231
  Transmission Date: 20220303
  Serious: Yes (Other)
  Sender: FDA-Public Use
  Company Number: CN-ROCHE-2992882

PATIENT
  Age: 49 Year
  Sex: Female

DRUGS (11)
  1. ERLOTINIB [Suspect]
     Active Substance: ERLOTINIB
     Indication: Non-small cell lung cancer
     Route: 065
  2. BEVACIZUMAB [Suspect]
     Active Substance: BEVACIZUMAB
     Indication: Non-small cell lung cancer
     Route: 065
  3. CISPLATIN [Suspect]
     Active Substance: CISPLATIN
     Indication: Non-small cell lung cancer
     Route: 065
  4. GEFITINIB [Suspect]
     Active Substance: GEFITINIB
     Indication: Non-small cell lung cancer
     Route: 065
  5. CABOZANTINIB [Suspect]
     Active Substance: CABOZANTINIB
     Indication: Non-small cell lung cancer
     Route: 065
  6. PEMBROLIZUMAB [Suspect]
     Active Substance: PEMBROLIZUMAB
     Indication: Non-small cell lung cancer
     Route: 065
  7. PEMETREXED [Suspect]
     Active Substance: PEMETREXED
     Indication: Non-small cell lung cancer
     Route: 065
  8. CRIZOTINIB [Concomitant]
     Active Substance: CRIZOTINIB
  9. CARBOPLATIN [Concomitant]
     Active Substance: CARBOPLATIN
  10. PACLITAXEL [Concomitant]
     Active Substance: PACLITAXEL
  11. CETUXIMAB [Concomitant]
     Active Substance: CETUXIMAB

REACTIONS (3)
  - Disease progression [Unknown]
  - Drug resistance [Unknown]
  - Metastases to liver [Unknown]
